FAERS Safety Report 6774832-9 (Version None)
Quarter: 2010Q2

REPORT INFORMATION
  Report Type: 
  Country: None (occurrence: None)
  Receive Date: 20100615
  Receipt Date: 20100615
  Transmission Date: 20101027
  Serious: No
  Sender: FDA-Public Use
  Company Number: None

PATIENT
  Sex: Female
  Weight: 76.2043 kg

DRUGS (2)
  1. PATANASE [Suspect]
     Indication: CHRONIC SINUSITIS
     Dosage: 2 SPRAYS IN EACH NOSTRIL TWICE A DAY NASAL 4 AND 1/2 DAYIS
     Route: 045
     Dates: start: 20100608, end: 20100612
  2. PATANASE [Suspect]
     Indication: NASAL CONGESTION
     Dosage: 2 SPRAYS IN EACH NOSTRIL TWICE A DAY NASAL 4 AND 1/2 DAYIS
     Route: 045
     Dates: start: 20100608, end: 20100612

REACTIONS (1)
  - DIARRHOEA [None]
